FAERS Safety Report 22606035 (Version 2)
Quarter: 2023Q2

REPORT INFORMATION
  Report Type: Spontaneous
  Country: US (occurrence: US)
  Receive Date: 20230615
  Receipt Date: 20230623
  Transmission Date: 20230721
  Serious: No
  Sender: FDA-Public Use
  Company Number: US-PFIZER INC-PV202300104397

PATIENT
  Age: 77 Year
  Sex: Female
  Weight: 74.376 kg

DRUGS (1)
  1. IBRANCE [Suspect]
     Active Substance: PALBOCICLIB
     Indication: Breast cancer female
     Dosage: DAILY D1-21 EVERY 28 DAYS (3 WEEKS ON AND 1 WEEK OFF)
     Route: 048
     Dates: start: 20210923, end: 20211215

REACTIONS (1)
  - Neoplasm progression [Unknown]

NARRATIVE: CASE EVENT DATE: 20230601
